FAERS Safety Report 12191970 (Version 1)
Quarter: 2016Q1

REPORT INFORMATION
  Report Type: Spontaneous
  Country: IT (occurrence: IT)
  Receive Date: 20160318
  Receipt Date: 20160318
  Transmission Date: 20160526
  Serious: Yes (Other)
  Sender: FDA-Public Use
  Company Number: IT-PFIZER INC-2016151969

PATIENT
  Age: 90 Year
  Sex: Female

DRUGS (4)
  1. QUINAPRIL [Suspect]
     Active Substance: QUINAPRIL\QUINAPRIL HYDROCHLORIDE
     Indication: HYPERTENSION
     Dosage: UNK
  2. CAPTOPRIL. [Suspect]
     Active Substance: CAPTOPRIL
     Indication: HYPERTENSION
     Dosage: 25 MG, DAILY
     Route: 048
  3. HYDROCHLOORTHIAZIDE [Concomitant]
     Active Substance: HYDROCHLOROTHIAZIDE
     Indication: HYPERTENSION
     Dosage: UNK
  4. ALTEPLASE [Suspect]
     Active Substance: ALTEPLASE
     Indication: ISCHAEMIC STROKE
     Dosage: 50 MG, UNK
     Route: 042

REACTIONS (6)
  - Angioedema [Recovering/Resolving]
  - Hypotension [Recovering/Resolving]
  - Hemiparesis [Recovering/Resolving]
  - Condition aggravated [Recovering/Resolving]
  - Bradycardia [Recovering/Resolving]
  - Shock [Recovering/Resolving]
